FAERS Safety Report 10083310 (Version 1)
Quarter: 2014Q2

REPORT INFORMATION
  Report Type: Spontaneous
  Country: NL (occurrence: NL)
  Receive Date: 20140417
  Receipt Date: 20140417
  Transmission Date: 20141212
  Serious: Yes (Other)
  Sender: FDA-Public Use
  Company Number: NL-AMGEN-NLDSP2014026733

PATIENT
  Age: 73 Year
  Sex: Female

DRUGS (2)
  1. XGEVA [Suspect]
     Indication: NEPHROGENIC ANAEMIA
     Dosage: 120 MG, Q4WK
     Route: 058
     Dates: start: 20140110
  2. NEULASTA [Concomitant]

REACTIONS (1)
  - Metastasis [Unknown]
